FAERS Safety Report 8624445-9 (Version None)
Quarter: 2012Q3

REPORT INFORMATION
  Report Type: 
  Country: None (occurrence: None)
  Receive Date: 20120827
  Receipt Date: 20120820
  Transmission Date: 20120928
  Serious: Yes (Hospitalization)
  Sender: FDA-Public Use
  Company Number: US-PFIZER INC-2012136287

PATIENT
  Age: 78 Year
  Sex: Male
  Weight: 99.3 kg

DRUGS (35)
  1. SUTENT [Suspect]
     Indication: PROSTATE CANCER
  2. TEMAZEPAM [Concomitant]
     Dosage: 15 MG, DAILY
     Route: 048
     Dates: start: 20120123
  3. NAPROXEN (ALEVE) [Concomitant]
     Dosage: UNK, EVERY 4-6 HOURS PRN
  4. LUPRON [Concomitant]
     Indication: PROSTATE CANCER
     Dosage: UNK
  5. SUTENT [Suspect]
     Indication: RENAL CANCER
  6. FENTANYL [Concomitant]
     Dosage: 25 UG, UNK
  7. ASPIRIN [Concomitant]
     Dosage: UNK, 1 TAB DAILY
     Route: 048
     Dates: start: 20120123
  8. DEXAMETHASONE [Concomitant]
     Dosage: 2 MG, 1X/DAY
     Route: 048
  9. METOPROLOL [Concomitant]
     Dosage: 25 MG, 2X/DAY
     Route: 048
  10. OMEPRAZOLE [Concomitant]
     Dosage: 40 MG, 1X/DAY
     Route: 048
  11. ZOMETA [Concomitant]
     Dosage: 4 MG, UNK
  12. TEMAZEPAM [Concomitant]
     Dosage: 15 MG, AT BEDTIME PRN
     Route: 048
  13. CHLORDIAZEPOXIDE [Concomitant]
     Dosage: 50 MG, 1X/DAY
     Route: 048
  14. RAPAFLO [Concomitant]
     Dosage: UNK
  15. METOPROLOL TARTRATE [Suspect]
     Dosage: 25 MG, 2X/DAY
     Route: 048
     Dates: start: 20120123
  16. NAPROXEN SODIUM [Concomitant]
     Dosage: UNK, 1 TAB, DAILY AS NEEDED
     Route: 048
     Dates: start: 20120123
  17. MIRALAX [Concomitant]
     Dosage: 17 GM 1 TIME X 1 DOSES
     Route: 048
  18. METOPROLOL TARTRATE [Suspect]
     Indication: HYPERTENSION
     Dosage: 12.5 MG, 2X/DAY
  19. DOCUSATE SODIUM [Concomitant]
     Dosage: 100 MG, 2X/DAY
     Route: 048
  20. OXYCODONE HCL AND ACETAMINOPHEN [Concomitant]
     Dosage: 5/325MG, (ZEVERY 6 HR AS NEEDED)
     Route: 048
     Dates: start: 20120730
  21. CALCIUM GLUCONATE [Concomitant]
     Dosage: UNK, 1 TAB, DAILY
     Route: 048
     Dates: start: 20120123
  22. MIDAZOLAM [Concomitant]
     Dosage: 2 MG, 1X/DAY
     Route: 042
  23. METOPROLOL [Concomitant]
     Dosage: 12.5 MG, 2X/DAY
     Route: 048
  24. SUTENT [Suspect]
     Indication: METASTATIC RENAL CELL CARCINOMA
  25. SILODOSIN [Concomitant]
     Dosage: 5 MG, (DAILY AS NEEDED)
     Route: 048
     Dates: start: 20120123
  26. LEVETIRACETAM [Concomitant]
     Dosage: 500 MG, 2X/DAY
     Route: 048
  27. LEVETIRACETAM [Concomitant]
     Dosage: 500 MG, ORAL ONE TIME STAT X 1 DOSES
     Route: 048
  28. MECLIZINE [Concomitant]
     Dosage: 25 MG, 1X/DAY, PRN
     Route: 048
  29. PERCOCET [Concomitant]
     Dosage: 10/325 (EVERY 6 HOURS)
  30. SUTENT [Suspect]
     Indication: BONE NEOPLASM MALIGNANT
     Dosage: 50 MG (DAILY TIMES 4 WEEKS EVERY 6 WEEKS)
     Dates: start: 20120529, end: 20120601
  31. FENTANYL [Concomitant]
     Indication: PAIN
     Dosage: 12 UG, (ZEVERY 72 HR)
     Route: 062
     Dates: start: 20120712
  32. ASPIRIN [Concomitant]
     Dosage: 81 MG, 1X/DAY
     Route: 048
  33. DEXAMETHASONE [Concomitant]
     Dosage: 2 MG, 2X/DAY
     Route: 048
     Dates: start: 20120423
  34. ENOXAPARIN [Concomitant]
     Dosage: 40 MG, (AT 8AM)
     Route: 058
  35. SODIUM CHLORIDE [Concomitant]
     Dosage: 1000 ML, (50 ML/HR)
     Route: 042

REACTIONS (3)
  - GRAND MAL CONVULSION [None]
  - HYPOTENSION [None]
  - FATIGUE [None]
